FAERS Safety Report 13611588 (Version 1)
Quarter: 2017Q2

REPORT INFORMATION
  Report Type: Spontaneous
  Country: US (occurrence: US)
  Receive Date: 20170605
  Receipt Date: 20170605
  Transmission Date: 20170830
  Serious: Yes (Other)
  Sender: FDA-Public Use
  Company Number: US-PFIZER INC-2017236458

PATIENT
  Age: 27 Year
  Sex: Female

DRUGS (1)
  1. KETAMINE HCL [Suspect]
     Active Substance: KETAMINE HYDROCHLORIDE
     Indication: SUBSTANCE USE
     Dosage: UNK

REACTIONS (4)
  - Hydronephrosis [Unknown]
  - Cystitis [Unknown]
  - Drug use disorder [Unknown]
  - Ureteric stenosis [Unknown]
